FAERS Safety Report 4663890-3 (Version None)
Quarter: 2005Q2

REPORT INFORMATION
  Report Type: 
  Country: None (occurrence: None)
  Receive Date: 20050516
  Receipt Date: 20050504
  Transmission Date: 20051028
  Serious: Yes (Death)
  Sender: FDA-Public Use
  Company Number: US-2005-006976

PATIENT
  Age: 65 Year
  Sex: Male

DRUGS (1)
  1. BETASERON(INTERFERON BETA - 1B) INJECTION, 250UG [Suspect]
     Indication: MULTIPLE SCLEROSIS
     Dosage: SUBCUTANEOUS
     Route: 058
     Dates: start: 19940325, end: 20050329

REACTIONS (1)
  - LUNG NEOPLASM MALIGNANT [None]
